FAERS Safety Report 4431842-4 (Version None)
Quarter: 2004Q3

REPORT INFORMATION
  Report Type: 
  Country: None (occurrence: None)
  Receive Date: 20040818
  Receipt Date: 20040730
  Transmission Date: 20050211
  Serious: Yes (Hospitalization)
  Sender: FDA-Public Use
  Company Number: US_0408104538

PATIENT
  Age: 42 Year
  Sex: Female
  Weight: 64 kg

DRUGS (2)
  1. ZYPREXA [Suspect]
     Dates: start: 20020715, end: 20021031
  2. FLUVOXAMINE MALEATE [Concomitant]

REACTIONS (2)
  - DIABETES MELLITUS [None]
  - DIABETIC GASTROPARESIS [None]
